FAERS Safety Report 8371262-3 (Version None)
Quarter: 2012Q2

REPORT INFORMATION
  Report Type: 
  Country: None (occurrence: None)
  Receive Date: 20120518
  Receipt Date: 20120509
  Transmission Date: 20120825
  Serious: Yes (Other)
  Sender: FDA-Public Use
  Company Number: US-ASTRAZENECA-2010SE61156

PATIENT
  Age: 45 Year
  Sex: Male

DRUGS (2)
  1. NEXIUM [Suspect]
     Route: 048
  2. PRILOSEC OTC [Suspect]
     Route: 048

REACTIONS (10)
  - CHEST PAIN [None]
  - DYSPEPSIA [None]
  - ABDOMINAL DISCOMFORT [None]
  - INTENTIONAL DRUG MISUSE [None]
  - DRUG INEFFECTIVE [None]
  - REGURGITATION [None]
  - BARRETT'S OESOPHAGUS [None]
  - THROAT IRRITATION [None]
  - ERUCTATION [None]
  - MALAISE [None]
